FAERS Safety Report 15160017 (Version 1)
Quarter: 2018Q3

REPORT INFORMATION
  Report Type: Spontaneous
  Country: CN (occurrence: CN)
  Receive Date: 20180718
  Receipt Date: 20180718
  Transmission Date: 20181010
  Serious: Yes (Death, Life-Threatening, Other)
  Sender: FDA-Public Use
  Company Number: CN-TAKEDA-2018MPI009605

PATIENT

DRUGS (6)
  1. CYCLOPHOSPHAMIDE. [Suspect]
     Active Substance: CYCLOPHOSPHAMIDE
     Indication: PLASMA CELL MYELOMA
     Dosage: UNK
     Route: 065
  2. BORTEZOMIB. [Suspect]
     Active Substance: BORTEZOMIB
     Indication: PLASMA CELL MYELOMA
     Dosage: 1.3 MG/M2, UNK
     Route: 065
  3. BORTEZOMIB. [Suspect]
     Active Substance: BORTEZOMIB
     Dosage: 1 MG/M2, UNK
     Route: 065
  4. DEXAMETHASONE. [Suspect]
     Active Substance: DEXAMETHASONE
     Indication: PLASMA CELL MYELOMA
     Dosage: UNK
     Route: 065
  5. ADRIAMYCIN [Suspect]
     Active Substance: DOXORUBICIN HYDROCHLORIDE
     Indication: PLASMA CELL MYELOMA
     Dosage: UNK
     Route: 065
  6. THALIDOMIDE [Suspect]
     Active Substance: THALIDOMIDE
     Indication: PLASMA CELL MYELOMA
     Dosage: UNK
     Route: 065

REACTIONS (17)
  - Neuropathy peripheral [Recovering/Resolving]
  - White blood cell count decreased [Recovering/Resolving]
  - Haemoglobin decreased [Recovering/Resolving]
  - Nausea [Unknown]
  - Diarrhoea [Unknown]
  - Vomiting [Unknown]
  - Pneumonia [Unknown]
  - Decreased appetite [Unknown]
  - Herpes zoster [Recovering/Resolving]
  - Muscular weakness [Unknown]
  - Platelet count decreased [Recovering/Resolving]
  - Infection [Fatal]
  - Cerebral infarction [Unknown]
  - Tic [Unknown]
  - Ileus paralytic [Unknown]
  - Lung infection [Unknown]
  - Constipation [Unknown]
